FAERS Safety Report 15723983 (Version 1)
Quarter: 2018Q4

REPORT INFORMATION
  Report Type: Spontaneous
  Country: JP (occurrence: JP)
  Receive Date: 20181214
  Receipt Date: 20181214
  Transmission Date: 20190205
  Serious: Yes (Other)
  Sender: FDA-Public Use
  Company Number: JP-JAZZ-2018-JP-017879

PATIENT
  Age: 68 Year
  Sex: Male

DRUGS (3)
  1. BRENTUXIMAB VEDOTIN [Suspect]
     Active Substance: BRENTUXIMAB VEDOTIN
     Indication: ANAPLASTIC LARGE-CELL LYMPHOMA
     Dosage: 1.8 MG/KG ON DAY 1
  2. DEXAMETHASONE. [Suspect]
     Active Substance: DEXAMETHASONE
     Indication: ANAPLASTIC LARGE-CELL LYMPHOMA
     Dosage: 10 MG/M2, ON DAYS 1?7
  3. ASPARAGINASE [Suspect]
     Active Substance: ASPARAGINASE
     Indication: ANAPLASTIC LARGE-CELL LYMPHOMA
     Dosage: 6000 U/M2 ON DAYS 1, 3, 5, 7, 9, 11, AND 13

REACTIONS (4)
  - Blood fibrinogen decreased [Recovered/Resolved]
  - Anaemia [Recovered/Resolved]
  - Thrombocytopenia [Recovered/Resolved]
  - Hepatic enzyme increased [Recovered/Resolved]
